FAERS Safety Report 12875035 (Version 2)
Quarter: 2016Q4

REPORT INFORMATION
  Report Type: Report from Study
  Country: US (occurrence: US)
  Receive Date: 20161023
  Receipt Date: 20161116
  Transmission Date: 20170207
  Serious: No
  Sender: FDA-Public Use
  Company Number: US-AMGEN-USASL2016144961

PATIENT
  Age: 53 Year
  Sex: Female

DRUGS (3)
  1. ENBREL [Suspect]
     Active Substance: ETANERCEPT
     Indication: PSORIASIS
  2. ENBREL [Suspect]
     Active Substance: ETANERCEPT
     Indication: ARTHRITIS
  3. ENBREL [Suspect]
     Active Substance: ETANERCEPT
     Indication: PSORIASIS
     Dosage: 50 MG, QWK
     Route: 065
     Dates: start: 201609, end: 2016

REACTIONS (8)
  - Pruritus [Unknown]
  - Injection site erythema [Unknown]
  - Local swelling [Unknown]
  - Adverse reaction [Unknown]
  - Urticaria [Unknown]
  - Pain in extremity [Recovering/Resolving]
  - Injection site pruritus [Unknown]
  - Erythema [Unknown]

NARRATIVE: CASE EVENT DATE: 2016
